FAERS Safety Report 4946850-4 (Version None)
Quarter: 2006Q1

REPORT INFORMATION
  Report Type: 
  Country: None (occurrence: None)
  Receive Date: 20060201
  Receipt Date: 20051209
  Transmission Date: 20060701
  Serious: No
  Sender: FDA-Public Use
  Company Number: 2005PV005667

PATIENT
  Age: 74 Year
  Sex: Female
  Weight: 118.8424 kg

DRUGS (3)
  1. BYETTA [Suspect]
     Indication: DIABETES MELLITUS NON-INSULIN-DEPENDENT
     Dosage: 5 MCG;SC
     Route: 058
     Dates: start: 20051208
  2. MICRONASE [Concomitant]
  3. METFORMIN [Concomitant]

REACTIONS (3)
  - DECREASED APPETITE [None]
  - HEADACHE [None]
  - NAUSEA [None]
